FAERS Safety Report 10061185 (Version 1)
Quarter: 2014Q2

REPORT INFORMATION
  Report Type: Spontaneous
  Country: BR (occurrence: BR)
  Receive Date: 20140407
  Receipt Date: 20140407
  Transmission Date: 20141212
  Serious: Yes (Other)
  Sender: FDA-Public Use
  Company Number: BR-AMGEN INC.-BRASP2014024151

PATIENT
  Age: 50 Year
  Sex: Female
  Weight: 74 kg

DRUGS (2)
  1. ENBREL [Suspect]
     Indication: RHEUMATOID ARTHRITIS
     Dosage: 50 MG, WEEKLY
     Route: 065
     Dates: start: 20140311
  2. PREDNISONE [Concomitant]
     Dosage: 5 MG, DAILY
     Dates: start: 2011

REACTIONS (5)
  - Abasia [Unknown]
  - Nodule [Unknown]
  - Neoplasm [Unknown]
  - Arthralgia [Unknown]
  - Pain in extremity [Unknown]
